FAERS Safety Report 8780322 (Version 1)
Quarter: 2012Q4

REPORT INFORMATION
  Report Type: Spontaneous
  Country: US (occurrence: None)
  Receive Date: 20120904
  Receipt Date: 20120904
  Transmission Date: 20130627
  Serious: Yes (Other)
  Sender: FDA-Public Use
  Company Number: None

PATIENT
  Sex: Female
  Weight: 35 kg

DRUGS (1)
  1. METHYLPHINIDATE ER [Suspect]
     Indication: ADHD
     Dosage: 54 mg tab 1 at am
     Route: 048
     Dates: start: 201106, end: 201107

REACTIONS (4)
  - Product substitution issue [None]
  - Drug ineffective [None]
  - Nightmare [None]
  - Insomnia [None]
